FAERS Safety Report 19795432 (Version 1)
Quarter: 2021Q3

REPORT INFORMATION
  Report Type: Report from Study
  Country: CA (occurrence: CA)
  Receive Date: 20210907
  Receipt Date: 20210907
  Transmission Date: 20211014
  Serious: Yes (Hospitalization, Other)
  Sender: FDA-Public Use
  Company Number: CA-JNJFOC-20210859218

PATIENT
  Age: 78 Year
  Sex: Male

DRUGS (11)
  1. BOTOX [Concomitant]
     Active Substance: ONABOTULINUMTOXINA
  2. OXYGEN. [Concomitant]
     Active Substance: OXYGEN
     Dosage: 2? 4 LITRE
  3. ACETYLSALICYLIC ACID [Concomitant]
     Active Substance: ASPIRIN
  4. SELEXIPAG [Suspect]
     Active Substance: SELEXIPAG
     Indication: PULMONARY HYPERTENSION
     Route: 048
     Dates: start: 20210712
  5. MACITENTAN [Suspect]
     Active Substance: MACITENTAN
     Indication: PULMONARY HYPERTENSION
     Route: 048
  6. METOPROLOL. [Concomitant]
     Active Substance: METOPROLOL
  7. AMLODIPINE [Concomitant]
     Active Substance: AMLODIPINE BESYLATE
  8. FISH OIL [Concomitant]
     Active Substance: FISH OIL
  9. ADCIRCA [Concomitant]
     Active Substance: TADALAFIL
  10. VOLIBRIS [Concomitant]
     Active Substance: AMBRISENTAN
  11. VALSARTAN. [Concomitant]
     Active Substance: VALSARTAN

REACTIONS (3)
  - Musculoskeletal chest pain [Recovering/Resolving]
  - Cough [Unknown]
  - Joint noise [Unknown]

NARRATIVE: CASE EVENT DATE: 20210823
